FAERS Safety Report 5008841-7 (Version None)
Quarter: 2006Q2

REPORT INFORMATION
  Report Type: 
  Country: None (occurrence: None)
  Receive Date: 20060518
  Receipt Date: 20060511
  Transmission Date: 20061013
  Serious: Yes (Hospitalization)
  Sender: FDA-Public Use
  Company Number: TPA2006A00805

PATIENT
  Age: 73 Year
  Sex: Male
  Weight: 67.1324 kg

DRUGS (3)
  1. ACTOS [Suspect]
     Indication: DIABETES MELLITUS NON-INSULIN-DEPENDENT
     Dosage: 45 MG 1 IN 1 D PER ORAL
     Route: 048
     Dates: start: 19990101
  2. LANTUS [Concomitant]
  3. HUMALOG [Concomitant]

REACTIONS (2)
  - CORONARY ARTERY OCCLUSION [None]
  - PULMONARY OEDEMA [None]
